FAERS Safety Report 20765657 (Version 8)
Quarter: 2024Q4

REPORT INFORMATION
  Report Type: Spontaneous
  Country: US (occurrence: US)
  Receive Date: 20220428
  Receipt Date: 20241219
  Transmission Date: 20250114
  Serious: Yes (Other)
  Sender: PFIZER
  Company Number: US-PFIZER INC-202200124042

PATIENT
  Age: 68 Year
  Sex: Female
  Weight: 88.667 kg

DRUGS (4)
  1. XELJANZ [Suspect]
     Active Substance: TOFACITINIB CITRATE
     Indication: Rheumatoid arthritis
     Dosage: 5 MG, 2X/DAY, AS DIRECTED BY PHYSICIAN
     Route: 048
  2. XELJANZ [Suspect]
     Active Substance: TOFACITINIB CITRATE
     Indication: Psoriatic arthropathy
     Dosage: 5 MG, TWICE A DAY
     Route: 048
  3. XELJANZ [Suspect]
     Active Substance: TOFACITINIB CITRATE
     Indication: Arthritis
  4. XELJANZ [Suspect]
     Active Substance: TOFACITINIB CITRATE
     Indication: Colitis

REACTIONS (13)
  - Psoriatic arthropathy [Not Recovered/Not Resolved]
  - Lung neoplasm malignant [Unknown]
  - Muscle spasms [Unknown]
  - Abdominal pain [Not Recovered/Not Resolved]
  - Fatigue [Not Recovered/Not Resolved]
  - Fall [Unknown]
  - Condition aggravated [Unknown]
  - Clumsiness [Unknown]
  - Gait disturbance [Unknown]
  - Contusion [Unknown]
  - Limb injury [Unknown]
  - Head injury [Unknown]
  - Back injury [Unknown]

NARRATIVE: CASE EVENT DATE: 20240101
